FAERS Safety Report 9198897 (Version 1)
Quarter: 2013Q1

REPORT INFORMATION
  Report Type: Spontaneous
  Country: IN (occurrence: None)
  Receive Date: 20130327
  Receipt Date: 20130327
  Transmission Date: 20140127
  Serious: Yes (Death, Hospitalization)
  Sender: FDA-Public Use
  Company Number: 2013SUN00381

PATIENT
  Age: 41 Year
  Sex: Male

DRUGS (3)
  1. LITHIUM (LITHIUM CARBONATE) TABLET, 300MG [Suspect]
     Indication: BIPOLAR DISORDER
  2. RISPERIDONE (RISPERIDONE) [Concomitant]
  3. ANTI-HYPERTENSIVE (ANTI-HYPERTENSIVE) [Concomitant]

REACTIONS (10)
  - Tubulointerstitial nephritis [None]
  - Toxicity to various agents [None]
  - Depressed level of consciousness [None]
  - Hypotension [None]
  - Haemoglobin decreased [None]
  - White blood cell count increased [None]
  - Neutrophilia [None]
  - Renal failure acute [None]
  - Escherichia test positive [None]
  - General physical health deterioration [None]
